FAERS Safety Report 25283957 (Version 2)
Quarter: 2025Q2

REPORT INFORMATION
  Report Type: Spontaneous
  Country: RU (occurrence: RU)
  Receive Date: 20250508
  Receipt Date: 20250529
  Transmission Date: 20250716
  Serious: Yes (Other)
  Sender: SANDOZ
  Company Number: RU-ASPEN-GLO2025RU003393

PATIENT
  Age: 11 Year
  Sex: Male
  Weight: 51.5 kg

DRUGS (11)
  1. AMIKACIN [Suspect]
     Active Substance: AMIKACIN
     Indication: Antibiotic therapy
     Route: 065
     Dates: start: 20230628, end: 20230628
  2. CLINDAMYCIN [Suspect]
     Active Substance: CLINDAMYCIN
     Indication: Antibiotic therapy
     Route: 065
     Dates: start: 20230628, end: 20230628
  3. FENTANYL [Suspect]
     Active Substance: FENTANYL
     Indication: Anaesthesia
     Route: 065
     Dates: start: 20230628, end: 20230628
  4. MORPHINE [Suspect]
     Active Substance: MORPHINE
     Indication: Anaesthesia
     Route: 065
     Dates: start: 20230628, end: 20230628
  5. NOREPINEPHRINE BITARTRATE [Suspect]
     Active Substance: NOREPINEPHRINE BITARTRATE
     Indication: Hypovolaemia
     Route: 065
     Dates: start: 20230628, end: 20230628
  6. OMEPRAZOLE [Suspect]
     Active Substance: OMEPRAZOLE
     Indication: Product used for unknown indication
     Route: 065
     Dates: start: 20230628, end: 20230628
  7. ROPIVACAINE HYDROCHLORIDE [Suspect]
     Active Substance: ROPIVACAINE HYDROCHLORIDE
     Indication: Anaesthesia
     Route: 065
     Dates: start: 20230628, end: 20230628
  8. ROPIVACAINE HYDROCHLORIDE [Suspect]
     Active Substance: ROPIVACAINE HYDROCHLORIDE
     Route: 065
  9. ROCURONIUM BROMIDE [Suspect]
     Active Substance: ROCURONIUM BROMIDE
     Indication: Anaesthesia
     Route: 065
     Dates: start: 20230628, end: 20230628
  10. SEVOFLURANE [Suspect]
     Active Substance: SEVOFLURANE
     Indication: Anaesthesia
     Route: 065
     Dates: start: 20230628, end: 20230628
  11. TRANEXAMIC ACID [Suspect]
     Active Substance: TRANEXAMIC ACID
     Indication: Product used for unknown indication
     Route: 065
     Dates: start: 20230628, end: 20230628

REACTIONS (7)
  - Pulmonary oedema [Unknown]
  - Pulmonary vascular disorder [Unknown]
  - Tachyarrhythmia [Recovered/Resolved]
  - Hypocapnia [Recovered/Resolved]
  - Oxygen saturation decreased [Recovered/Resolved]
  - Lymphostasis [Unknown]
  - Hypotension [Recovered/Resolved]

NARRATIVE: CASE EVENT DATE: 20230628
